FAERS Safety Report 19246093 (Version 2)
Quarter: 2021Q2

REPORT INFORMATION
  Report Type: Spontaneous
  Country: FR (occurrence: FR)
  Receive Date: 20210512
  Receipt Date: 20210515
  Transmission Date: 20210717
  Serious: Yes (Death)
  Sender: FDA-Public Use
  Company Number: NVSC2021FR105703

PATIENT
  Age: 82 Year
  Sex: Male

DRUGS (18)
  1. TAFINLAR [Suspect]
     Active Substance: DABRAFENIB MESYLATE
     Indication: LYMPHOMA
  2. OXYNORMORO [Concomitant]
     Active Substance: OXYCODONE HYDROCHLORIDE
     Indication: PRODUCT USED FOR UNKNOWN INDICATION
     Dosage: 5 MG (1 TABLET IN THE MORNING, 1 AT NOON, 1 AT SNACK TIME, 1 IN THE EVENING, 1 BEFORE GOING TO BED A
     Route: 048
  3. EDUCTYL [Concomitant]
     Active Substance: POTASSIUM BITARTRATE\SODIUM BICARBONATE
     Indication: PRODUCT USED FOR UNKNOWN INDICATION
     Dosage: UNK UNK, Q8H (1 SUPPOSITORY IN THE MORNING EVERY DAY FOR 8 DAYS)
     Route: 065
  4. TARDYFERON [Concomitant]
     Active Substance: FERROUS SULFATE
     Indication: PRODUCT USED FOR UNKNOWN INDICATION
     Dosage: 80 MG, Q12H (FOR 8 DAYS)
     Route: 048
  5. ELIQUIS [Concomitant]
     Active Substance: APIXABAN
     Indication: PRODUCT USED FOR UNKNOWN INDICATION
     Dosage: 2.5 MG (1 IN THE MORNING AND 1 IN THE EVENING EVERY DAY FOR 8 DAYS)
     Route: 048
  6. OXYCONTIN [Concomitant]
     Active Substance: OXYCODONE HYDROCHLORIDE
     Indication: PRODUCT USED FOR UNKNOWN INDICATION
     Dosage: 20 MG (1 IN THE MORNING AND 1 IN THE EVENING EVERY DAY FOR 8 DAYS)
     Route: 048
  7. PARACETAMOL PANPHARMA [Concomitant]
     Active Substance: ACETAMINOPHEN
     Indication: PRODUCT USED FOR UNKNOWN INDICATION
     Dosage: UNK (10 MG/ML, 1G IN THE MORNING, 1 AT NOON, 1 DURING SNACK TIME, 1 IN THE EVENING EVERY DAY FOR 4 D
     Route: 042
  8. SODIUM CHLORIDE ^FRESENIUS^ [Concomitant]
     Indication: PRODUCT USED FOR UNKNOWN INDICATION
     Dosage: 1000 ML, Q24H (FOR 7 DAYS)
     Route: 042
  9. MEKINIST [Suspect]
     Active Substance: TRAMETINIB DIMETHYL SULFOXIDE
     Indication: METASTATIC MALIGNANT MELANOMA
     Dosage: 2 MG, Q6H (6H EVERY DAY FOR 8 DAYS)
     Route: 048
  10. TAFINLAR [Suspect]
     Active Substance: DABRAFENIB MESYLATE
     Indication: METASTATIC MALIGNANT MELANOMA
     Dosage: 75 MG, Q12H (2 CAPSULES AT 6H AND 2 IN THE EVENING (18) EVERY DAY FOR 8 DAYS)
     Route: 048
  11. POTASSIUM CHLORIDE. [Concomitant]
     Active Substance: POTASSIUM CHLORIDE
     Indication: PRODUCT USED FOR UNKNOWN INDICATION
     Dosage: 600 MG (2 IN THE MORNING AND 2 IN THE EVENING FOR 8 DAYS)
     Route: 048
  12. NOVORAPID [Concomitant]
     Active Substance: INSULIN ASPART
     Indication: PRODUCT USED FOR UNKNOWN INDICATION
     Dosage: UNK (100 UNITS PER ML) (1 UNIT IN THE MORNING, 1 AT NOON , 1 IN THE EVENING EVERY DAY FOR 8 DAYS)
     Route: 058
  13. ROCEPHINE [Concomitant]
     Active Substance: CEFTRIAXONE SODIUM
     Indication: PRODUCT USED FOR UNKNOWN INDICATION
     Dosage: UNK (1 G/10 ML, 1 VIAL DURING SNACK TIME EVERY DAY FOR 7 DAYS)
     Route: 042
  14. MIDAZOLAM. [Concomitant]
     Active Substance: MIDAZOLAM
     Indication: PRODUCT USED FOR UNKNOWN INDICATION
     Dosage: UNK (5 MG/ML, AT 17H EVERY DAY FOR 1 DAY)
     Route: 042
  15. MEKINIST [Suspect]
     Active Substance: TRAMETINIB DIMETHYL SULFOXIDE
     Indication: LYMPHOMA
  16. PAROXETINE. [Concomitant]
     Active Substance: PAROXETINE
     Indication: PRODUCT USED FOR UNKNOWN INDICATION
     Dosage: 20 MG, Q8H (IN THE MORNING)
     Route: 048
  17. ESOMEPRAZOLE. [Concomitant]
     Active Substance: ESOMEPRAZOLE MAGNESIUM
     Indication: PRODUCT USED FOR UNKNOWN INDICATION
     Dosage: 40 MG, Q18H (FOR 8 DAYS, IN EVENING DAILY)
     Route: 048
  18. LASILIX [Concomitant]
     Active Substance: FUROSEMIDE
     Indication: PRODUCT USED FOR UNKNOWN INDICATION
     Dosage: 40 MG, Q8H (EVERY DAY FOR 8 DAYS)
     Route: 048

REACTIONS (2)
  - Malaise [Fatal]
  - Depressed level of consciousness [Fatal]
